FAERS Safety Report 8267027-3 (Version None)
Quarter: 2012Q2

REPORT INFORMATION
  Report Type: 
  Country: None (occurrence: None)
  Receive Date: 20120409
  Receipt Date: 20120403
  Transmission Date: 20120825
  Serious: No
  Sender: FDA-Public Use
  Company Number: US-PFIZER INC-2012037044

PATIENT
  Sex: Female

DRUGS (2)
  1. EFFEXOR XR [Suspect]
     Dosage: UNK
  2. LYRICA [Suspect]
     Dosage: 300 MG

REACTIONS (7)
  - EPILEPTIC AURA [None]
  - SPEECH DISORDER [None]
  - WEIGHT INCREASED [None]
  - DRY MOUTH [None]
  - TREMOR [None]
  - SOMNOLENCE [None]
  - NASOPHARYNGITIS [None]
